FAERS Safety Report 20052371 (Version 2)
Quarter: 2021Q4

REPORT INFORMATION
  Report Type: Spontaneous
  Country: NL (occurrence: NL)
  Receive Date: 20211110
  Receipt Date: 20211112
  Transmission Date: 20220304
  Serious: Yes (Death, Other)
  Sender: FDA-Public Use
  Company Number: None

PATIENT
  Age: 69 Year
  Sex: Male
  Weight: 77 kg

DRUGS (10)
  1. PREDNISONE [Suspect]
     Active Substance: PREDNISONE
     Indication: Product used for unknown indication
     Dosage: UNK, QD (1X DAILY 1.5)
     Dates: start: 20141014
  2. TACROLIMUS [Suspect]
     Active Substance: TACROLIMUS
     Dosage: UNK (2D1)
     Dates: start: 20151013, end: 20210401
  3. MODERNA COVID-19 VACCINE [Suspect]
     Active Substance: CX-024414
     Indication: COVID-19 immunisation
     Dosage: 1 DOSAGE FORM
     Dates: start: 20210325
  4. INSULINE                           /01223401/ [Concomitant]
     Dosage: UNK (SUSPENSIE VOOR INJECTIE, 100 IE/ML (EENHEDEN )
  5. CARVEDILOL [Concomitant]
     Active Substance: CARVEDILOL
     Dosage: UNK (TABLET, 12,5 MG (MILLIGRAM))
  6. PANTOPRAZOL                        /01263201/ [Concomitant]
     Dosage: UNK (MAAGSAPRESISTENTE TABLET, 40 MG )
  7. GLICLAZIDE [Concomitant]
     Active Substance: GLICLAZIDE
     Dosage: UNK (TABLET MET GEREGULEERDE)
  8. INSULIN ASPART [Concomitant]
     Active Substance: INSULIN ASPART
     Dosage: UNK (INJECTIEVLOEISTOF, 100 EENHEDEN/ML)
  9. IRBESARTAN [Concomitant]
     Active Substance: IRBESARTAN
     Dosage: 150 MILLIGRAM (TABLET, 150 MG (MILLIGRAM))
  10. METFORMINE                         /00082701/ [Concomitant]
     Dosage: UNK (TABLET MET GEREGULEERDE )

REACTIONS (7)
  - Hyperammonaemia [Fatal]
  - Metabolic encephalopathy [Fatal]
  - Loss of consciousness [Unknown]
  - Thrombocytopenia [Unknown]
  - Pancytopenia [Unknown]
  - Aggression [Unknown]
  - Confusional state [Unknown]

NARRATIVE: CASE EVENT DATE: 20210326
